FAERS Safety Report 9625106 (Version 1)
Quarter: 2013Q4

REPORT INFORMATION
  Report Type: Spontaneous
  Country: US (occurrence: None)
  Receive Date: 20131015
  Receipt Date: 20131015
  Transmission Date: 20140711
  Serious: Yes (Other)
  Sender: FDA-Public Use
  Company Number: None

PATIENT
  Sex: Male

DRUGS (1)
  1. TACROLIMUS [Suspect]
     Dosage: GENERIC
     Route: 048
     Dates: start: 2012

REACTIONS (2)
  - Product substitution issue [None]
  - Pruritus [None]
